FAERS Safety Report 18201094 (Version 1)
Quarter: 2020Q3

REPORT INFORMATION
  Report Type: Report from Study
  Country: None (occurrence: IL)
  Receive Date: 20200826
  Receipt Date: 20200826
  Transmission Date: 20201103
  Serious: Yes (Other)
  Sender: FDA-Public Use
  Company Number: IL-ABBVIE-20K-082-3538856-00

PATIENT
  Age: 70 Year
  Sex: Male

DRUGS (2)
  1. LEVODOPA/CARBIDOPA [Suspect]
     Active Substance: CARBIDOPA\LEVODOPA
     Indication: PARKINSON^S DISEASE
     Route: 050
     Dates: start: 20190331
  2. LEVODOPA/CARBIDOPA [Suspect]
     Active Substance: CARBIDOPA\LEVODOPA
     Dosage: CURRENT: MORNING DOSE 12.0ML, CONTINUOUS RATE 4.5ML/HOUR, EXTRA DOSE 2.0ML
     Route: 050

REACTIONS (2)
  - Prostate cancer recurrent [Unknown]
  - Prostatic specific antigen increased [Unknown]
